FAERS Safety Report 12764383 (Version 3)
Quarter: 2016Q4

REPORT INFORMATION
  Report Type: Spontaneous
  Country: BR (occurrence: BR)
  Receive Date: 20160920
  Receipt Date: 20161123
  Transmission Date: 20170207
  Serious: Yes (Other)
  Sender: FDA-Public Use
  Company Number: BR-ELI_LILLY_AND_COMPANY-BR201609004813

PATIENT
  Age: 52 Year
  Sex: Female
  Weight: 94 kg

DRUGS (3)
  1. HUMALOG [Suspect]
     Active Substance: INSULIN LISPRO
     Dosage: 18 IU, TID
     Route: 058
     Dates: start: 20160906
  2. HUMALOG [Suspect]
     Active Substance: INSULIN LISPRO
     Indication: DIABETES MELLITUS
     Dosage: 18 IU, TID
     Route: 058
     Dates: start: 2011
  3. INSULIN GLARGINE [Concomitant]
     Active Substance: INSULIN GLARGINE
     Dosage: 80 DF, TID
     Route: 065

REACTIONS (9)
  - Blood glucose increased [Recovered/Resolved]
  - Incorrect product storage [Unknown]
  - Arthralgia [Unknown]
  - Blood glucose decreased [Recovered/Resolved]
  - Drug ineffective [Unknown]
  - Blindness [Not Recovered/Not Resolved]
  - Weight increased [Unknown]
  - Diabetic metabolic decompensation [Unknown]
  - Fatigue [Unknown]

NARRATIVE: CASE EVENT DATE: 2012
